FAERS Safety Report 25594234 (Version 1)
Quarter: 2025Q3

REPORT INFORMATION
  Report Type: Other
  Country: EU (occurrence: EU)
  Receive Date: 20250723
  Receipt Date: 20250723
  Transmission Date: 20251021
  Serious: Yes (Hospitalization, Other)
  Sender: GLENMARK
  Company Number: None

PATIENT
  Age: 87 Year
  Sex: Female
  Weight: 43.7 kg

DRUGS (4)
  1. TELMISARTAN [Interacting]
     Active Substance: TELMISARTAN
     Indication: Hypertension
     Dosage: 160 MILLIGRAM QD, EVERY 24 HOURS (80MG 2-0-0 )
     Route: 048
     Dates: start: 20250213, end: 20250616
  2. DOXAZOSIN [Interacting]
     Active Substance: DOXAZOSIN MESYLATE
     Indication: Hypertension
     Dosage: 4 MILLIGRAM EVERY QD; 24 HOURS  (4MG 1-0-0)
     Route: 048
     Dates: start: 20250121, end: 20250616
  3. AMLODIPINE BESYLATE [Interacting]
     Active Substance: AMLODIPINE BESYLATE
     Indication: Hypertension
     Dosage: 10 MILLIGRAM QD; EVERY 24 HOURS, 0-0-1
     Route: 048
     Dates: start: 20250121, end: 20250616
  4. FUROSEMIDE [Interacting]
     Active Substance: FUROSEMIDE
     Indication: Cardiac failure acute
     Dosage: 40 MILLIGRAM BID (EVERY 12 HOURS) 1-1-0
     Route: 048
     Dates: start: 20250603, end: 20250606

REACTIONS (2)
  - Drug interaction [Recovering/Resolving]
  - Acute kidney injury [Recovering/Resolving]

NARRATIVE: CASE EVENT DATE: 20250616
